FAERS Safety Report 8350814-0 (Version None)
Quarter: 2012Q2

REPORT INFORMATION
  Report Type: 
  Country: None (occurrence: None)
  Receive Date: 20120510
  Receipt Date: 20120501
  Transmission Date: 20120825
  Serious: Yes (Other)
  Sender: FDA-Public Use
  Company Number: US-BRISTOL-MYERS SQUIBB COMPANY-16563629

PATIENT
  Sex: Female

DRUGS (1)
  1. YERVOY [Suspect]
     Dosage: 2 YERVOY INF

REACTIONS (6)
  - DECREASED APPETITE [None]
  - RASH [None]
  - PANIC ATTACK [None]
  - BLOOD GLUCOSE FLUCTUATION [None]
  - WEIGHT DECREASED [None]
  - DEPRESSION [None]
